FAERS Safety Report 5220264-4 (Version None)
Quarter: 2006Q4

REPORT INFORMATION
  Report Type: 
  Country: None (occurrence: None)
  Receive Date: 20061201
  Receipt Date: 20060712
  Transmission Date: 20070319
  Serious: No
  Sender: FDA-Public Use
  Company Number: 2006PV017458

PATIENT
  Age: 78 Year
  Sex: Female
  Weight: 86.637 kg

DRUGS (4)
  1. BYETTA [Suspect]
     Indication: DIABETES MELLITUS NON-INSULIN-DEPENDENT
     Dosage: 5 MCG; BID; SC
     Route: 058
     Dates: start: 20060709
  2. METFORMIN HCL [Concomitant]
  3. POTASSIUM ACETATE [Concomitant]
  4. AN UNSPECIFIED BETA BLOCKER [Concomitant]

REACTIONS (11)
  - ABDOMINAL PAIN UPPER [None]
  - ASTHENIA [None]
  - BLOOD GLUCOSE INCREASED [None]
  - DECREASED APPETITE [None]
  - DEPRESSED MOOD [None]
  - FATIGUE [None]
  - FEELING ABNORMAL [None]
  - INFREQUENT BOWEL MOVEMENTS [None]
  - LAZINESS [None]
  - NAUSEA [None]
  - WEIGHT DECREASED [None]
